FAERS Safety Report 7594954-2 (Version None)
Quarter: 2011Q3

REPORT INFORMATION
  Report Type: 
  Country: None (occurrence: None)
  Receive Date: 20110707
  Receipt Date: 20110623
  Transmission Date: 20111222
  Serious: Yes (Hospitalization)
  Sender: FDA-Public Use
  Company Number: SE-JNJFOC-20080905930

PATIENT
  Age: 30 Year
  Sex: Female
  Weight: 95 kg

DRUGS (4)
  1. CALCICHEW D3 [Concomitant]
     Indication: OSTEOPOROSIS PROPHYLAXIS
     Route: 048
     Dates: start: 20080116, end: 20081029
  2. OMEPRAZOLE [Concomitant]
     Indication: DYSPEPSIA
     Route: 048
  3. REMICADE [Suspect]
     Indication: COLITIS ULCERATIVE
     Route: 042
     Dates: start: 20080723, end: 20080723
  4. ALVEDON [Concomitant]
     Indication: PAIN
     Route: 048
     Dates: start: 20080721

REACTIONS (4)
  - POSTOPERATIVE WOUND INFECTION [None]
  - ANAL ABSCESS [None]
  - COLECTOMY [None]
  - RECTAL OBSTRUCTION [None]
